FAERS Safety Report 21937959 (Version 3)
Quarter: 2023Q2

REPORT INFORMATION
  Report Type: Spontaneous
  Country: JP (occurrence: JP)
  Receive Date: 20230201
  Receipt Date: 20230605
  Transmission Date: 20230722
  Serious: Yes (Death)
  Sender: FDA-Public Use
  Company Number: JP-Merck Healthcare KGaA-9379213

PATIENT
  Age: 67 Year
  Sex: Male
  Weight: 60 kg

DRUGS (9)
  1. ERBITUX [Suspect]
     Active Substance: CETUXIMAB
     Indication: Hypopharyngeal cancer
     Dosage: UNK UNK, UNKNOWN (ADMINISTERED 6 TIMES )
     Route: 041
  2. ERBITUX [Suspect]
     Active Substance: CETUXIMAB
     Dosage: 664 MG, WEEKLY (1/W)
     Route: 041
     Dates: start: 20210706
  3. METGLUCO [Concomitant]
     Active Substance: METFORMIN HYDROCHLORIDE
     Indication: Product used for unknown indication
  4. NESINA [Concomitant]
     Active Substance: ALOGLIPTIN BENZOATE
     Indication: Product used for unknown indication
  5. URSO [Concomitant]
     Active Substance: URSODIOL
     Indication: Product used for unknown indication
  6. NEXIUM [Concomitant]
     Active Substance: ESOMEPRAZOLE MAGNESIUM
     Indication: Product used for unknown indication
  7. METHYLCOBALAMIN [Concomitant]
     Active Substance: METHYLCOBALAMIN
     Indication: Product used for unknown indication
  8. AMLODIPINE BESYLATE\IRBESARTAN [Concomitant]
     Active Substance: AMLODIPINE BESYLATE\IRBESARTAN
     Indication: Product used for unknown indication
  9. FUROSEMIDE [Concomitant]
     Active Substance: FUROSEMIDE
     Indication: Product used for unknown indication

REACTIONS (4)
  - Portal venous gas [Fatal]
  - Pneumatosis intestinalis [Fatal]
  - Septic shock [Fatal]
  - Intestinal perforation [Fatal]

NARRATIVE: CASE EVENT DATE: 20210814
